FAERS Safety Report 12206578 (Version 1)
Quarter: 2016Q1

REPORT INFORMATION
  Report Type: Spontaneous
  Country: US (occurrence: None)
  Receive Date: 20160323
  Receipt Date: 20160323
  Transmission Date: 20160526
  Serious: No
  Sender: FDA-Public Use
  Company Number: None

PATIENT
  Age: 65 Year
  Sex: Female

DRUGS (13)
  1. NEUPOGEN [Suspect]
     Active Substance: FILGRASTIM
     Indication: BLOOD STEM CELL HARVEST
     Dosage: 900MCG DAILY X 9 SQ
     Route: 058
     Dates: start: 20160307, end: 20160321
  2. BYSTOLIC [Concomitant]
     Active Substance: NEBIVOLOL HYDROCHLORIDE
  3. MULTIVIT [Concomitant]
     Active Substance: VITAMINS
  4. SENNA [Concomitant]
     Active Substance: SENNA LEAF\SENNOSIDES\SENNOSIDES A AND B
  5. ARMOUR THYROID [Concomitant]
     Active Substance: THYROID, PORCINE
  6. HYDROCHLOROT [Concomitant]
     Active Substance: HYDROCHLOROTHIAZIDE
  7. ACYCLOVIR. [Concomitant]
     Active Substance: ACYCLOVIR
  8. FLUCONAZOLE. [Suspect]
     Active Substance: FLUCONAZOLE
  9. TRAMADOL. [Concomitant]
     Active Substance: TRAMADOL
  10. ALLOPURINOL. [Concomitant]
     Active Substance: ALLOPURINOL
  11. NEUPOGEN [Concomitant]
     Active Substance: FILGRASTIM
  12. MOZOBIL [Suspect]
     Active Substance: PLERIXAFOR
     Indication: BLOOD STEM CELL HARVEST
     Dosage: 22MG DAILY X 4 SQ
     Route: 058
     Dates: start: 20160316, end: 20160321
  13. DOCQLACE [Concomitant]
     Active Substance: DOCUSATE SODIUM

REACTIONS (1)
  - Blood stem cell harvest failure [None]

NARRATIVE: CASE EVENT DATE: 20160321
